FAERS Safety Report 23410299 (Version 2)
Quarter: 2024Q1

REPORT INFORMATION
  Report Type: Report from Study
  Country: CA (occurrence: None)
  Receive Date: 20240117
  Receipt Date: 20240307
  Transmission Date: 20240409
  Serious: Yes (Hospitalization)
  Sender: FDA-Public Use
  Company Number: 2023A291380

PATIENT
  Sex: Male

DRUGS (4)
  1. FASENRA [Suspect]
     Active Substance: BENRALIZUMAB
     Indication: Asthma
     Dosage: 30.0MG UNKNOWN
     Route: 058
     Dates: start: 20190202
  2. ARNUITY ELLIPTA [Concomitant]
     Active Substance: FLUTICASONE FUROATE
     Dosage: 200.0UG UNKNOWN
  3. BRICANYL [Concomitant]
     Active Substance: TERBUTALINE SULFATE
     Dosage: 1-2 INH QID PRN UNKNOWN
  4. BREO ELLIPTA [Concomitant]
     Active Substance: FLUTICASONE FUROATE\VILANTEROL TRIFENATATE
     Dosage: 200/25MCG 1 INH/J UNKNOWN

REACTIONS (7)
  - COVID-19 [Unknown]
  - Influenza [Unknown]
  - COVID-19 pneumonia [Unknown]
  - Bronchospasm [Unknown]
  - Pneumonia influenzal [Unknown]
  - Drug ineffective [Unknown]
  - Asthma [Unknown]
